FAERS Safety Report 6975997-6 (Version None)
Quarter: 2010Q3

REPORT INFORMATION
  Report Type: 
  Country: None (occurrence: None)
  Receive Date: 20100910
  Receipt Date: 20100806
  Transmission Date: 20110219
  Serious: Yes (Hospitalization, Other)
  Sender: FDA-Public Use
  Company Number: US-BAYER-200942679NA

PATIENT
  Sex: Female

DRUGS (10)
  1. YAZ [Suspect]
     Indication: PRODUCT USED FOR UNKNOWN INDICATION
  2. YASMIN [Suspect]
     Indication: PRODUCT USED FOR UNKNOWN INDICATION
  3. PHENERGAN [Concomitant]
     Dates: start: 20080408
  4. LORTAB [Concomitant]
     Dates: start: 20080408
  5. LORTAB [Concomitant]
     Dates: start: 20090712
  6. BENTYL [Concomitant]
     Dates: start: 20080408
  7. MACROBID [Concomitant]
  8. VITAMIN AND MINERAL PRENATAL SUPPLEMENT W/ FOLIC ACID CAP [Concomitant]
  9. ZOFRAN [Concomitant]
  10. TYLENOL [Concomitant]

REACTIONS (1)
  - THROMBOSIS [None]
